FAERS Safety Report 25837539 (Version 2)
Quarter: 2025Q4

REPORT INFORMATION
  Report Type: Report from Study
  Country: US (occurrence: US)
  Receive Date: 20250923
  Receipt Date: 20251201
  Transmission Date: 20260118
  Serious: Yes (Hospitalization)
  Sender: MALLINCKRODT
  Company Number: US-MALLINCKRODT-MNK202505741

PATIENT
  Sex: Female
  Weight: 189 kg

DRUGS (2)
  1. CORTICOTROPIN [Suspect]
     Active Substance: CORTICOTROPIN
     Indication: Rheumatoid arthritis
     Dosage: UNKNOWN
  2. CORTICOTROPIN [Suspect]
     Active Substance: CORTICOTROPIN
     Dosage: UNKNOWN

REACTIONS (6)
  - Shoulder arthroplasty [Unknown]
  - Memory impairment [Unknown]
  - Insomnia [Unknown]
  - Weight increased [Unknown]
  - Blood glucose increased [Unknown]
  - Peripheral swelling [Unknown]
